FAERS Safety Report 20801395 (Version 1)
Quarter: 2022Q2

REPORT INFORMATION
  Report Type: Spontaneous
  Country: US (occurrence: None)
  Receive Date: 20220506
  Receipt Date: 20220506
  Transmission Date: 20220720
  Serious: No
  Sender: FDA-Public Use
  Company Number: None

PATIENT
  Sex: Male
  Weight: 79.83 kg

DRUGS (18)
  1. INLYTA [Suspect]
     Active Substance: AXITINIB
     Indication: Waldenstrom^s macroglobulinaemia
     Dosage: FREQUENCY : TWICE A DAY;?
     Route: 048
     Dates: start: 202104
  2. ACYCLOVIR [Concomitant]
  3. ASPIRIN [Concomitant]
  4. BUMETADINE [Concomitant]
  5. CLONIDINE [Concomitant]
  6. DECADRON [Concomitant]
  7. GABAPENINT [Concomitant]
  8. HYDRALAZINE [Concomitant]
  9. LOVAST [Concomitant]
  10. METFORMIN [Concomitant]
  11. METOLAZONE [Concomitant]
  12. METOPROLOL [Concomitant]
     Active Substance: METOPROLOL
  13. OMEPRAZOLE [Concomitant]
  14. PLAVIC [Concomitant]
  15. TAMSULOSIN [Concomitant]
  16. TRELEGY [Concomitant]
  17. TRESIBA [Concomitant]
  18. VELCADE [Concomitant]
     Active Substance: BORTEZOMIB

REACTIONS (1)
  - Plasma cell myeloma [None]
